FAERS Safety Report 5444886-0 (Version None)
Quarter: 2007Q3

REPORT INFORMATION
  Report Type: 
  Country: None (occurrence: None)
  Receive Date: 20070830
  Receipt Date: 20070820
  Transmission Date: 20080115
  Serious: Yes (Other)
  Sender: FDA-Public Use
  Company Number: B0484746A

PATIENT
  Age: 49 Year
  Sex: Female

DRUGS (4)
  1. ZIDOVUDINE [Suspect]
     Indication: HIV INFECTION
     Dates: start: 19961201, end: 20050701
  2. DIDANOSINE [Suspect]
     Indication: HIV INFECTION
     Dates: start: 19961201, end: 20050701
  3. NEVIRAPINE [Suspect]
     Indication: HIV INFECTION
     Dates: start: 19961201, end: 20050701
  4. ORAL CONTRACEPTIVE [Concomitant]

REACTIONS (9)
  - CHOLESTASIS [None]
  - CYTOLYTIC HEPATITIS [None]
  - HEPATIC FAILURE [None]
  - HEPATOSPLENOMEGALY [None]
  - HEPATOTOXICITY [None]
  - NODULAR REGENERATIVE HYPERPLASIA [None]
  - PORTAL HYPERTENSION [None]
  - THROMBOCYTOPENIA [None]
  - VASCULAR PURPURA [None]
